FAERS Safety Report 9640393 (Version 1)
Quarter: 2013Q4

REPORT INFORMATION
  Report Type: Spontaneous
  Country: US (occurrence: None)
  Receive Date: 20131022
  Receipt Date: 20131022
  Transmission Date: 20140711
  Serious: No
  Sender: FDA-Public Use
  Company Number: None

PATIENT
  Age: 86 Year
  Sex: Female

DRUGS (9)
  1. ALPHAGAN [Suspect]
     Indication: INTRAOCULAR PRESSURE INCREASED
     Dosage: 0.1 % OPH, SOLU, 1 GTT LEFT EYE A.M. + H.S., A.M. + BEDTIME, EYE (LEFT)
     Route: 047
     Dates: start: 20120612, end: 201306
  2. ALPHAGAN [Suspect]
     Indication: GLAUCOMA
     Dosage: 0.1 % OPH, SOLU, 1 GTT LEFT EYE A.M. + H.S., A.M. + BEDTIME, EYE (LEFT)
     Route: 047
     Dates: start: 20120612, end: 201306
  3. THYROID (LEVOTHYROXINE) [Concomitant]
  4. LATANOPROST [Concomitant]
  5. MULTI VITAMOMS [Concomitant]
  6. GLUCORAMINE [Concomitant]
  7. CALCIUM W/VIT D [Concomitant]
  8. ENTERIC [Concomitant]
  9. LACTOSE [Concomitant]

REACTIONS (6)
  - Dyspnoea [None]
  - Fatigue [None]
  - Sinus disorder [None]
  - Nasal congestion [None]
  - Myalgia [None]
  - Pain [None]
